FAERS Safety Report 10740696 (Version 1)
Quarter: 2015Q1

REPORT INFORMATION
  Report Type: Spontaneous
  Country: US (occurrence: US)
  Receive Date: 20150127
  Receipt Date: 20150127
  Transmission Date: 20150721
  Serious: Yes (Life-Threatening, Hospitalization)
  Sender: FDA-Public Use
  Company Number: US-JNJFOC-20150111662

PATIENT
  Age: 59 Year
  Sex: Female

DRUGS (3)
  1. SALICYLATES NOS [Suspect]
     Active Substance: UNSPECIFIED INGREDIENT
     Indication: PRODUCT USED FOR UNKNOWN INDICATION
     Route: 065
  2. TYLENOL WITH CODEINE [Suspect]
     Active Substance: ACETAMINOPHEN\CODEINE PHOSPHATE
     Indication: PRODUCT USED FOR UNKNOWN INDICATION
     Route: 065
  3. NITROPRUSSIDE [Suspect]
     Active Substance: NITROPRUSSIDE
     Indication: PRODUCT USED FOR UNKNOWN INDICATION
     Route: 065

REACTIONS (11)
  - Hypotension [Unknown]
  - Intentional product misuse [Unknown]
  - Coma [Recovered/Resolved]
  - Transaminases increased [Unknown]
  - Abdominal pain [Unknown]
  - Toxicity to various agents [Recovering/Resolving]
  - Hypoglycaemia [Recovered/Resolved]
  - Prothrombin time prolonged [Unknown]
  - Blood urea increased [Unknown]
  - International normalised ratio increased [Unknown]
  - Blood creatinine increased [Unknown]

NARRATIVE: CASE EVENT DATE: 200711
